FAERS Safety Report 8324877-2 (Version None)
Quarter: 2012Q2

REPORT INFORMATION
  Report Type: 
  Country: None (occurrence: None)
  Receive Date: 20120501
  Receipt Date: 20120425
  Transmission Date: 20120825
  Serious: Yes (Hospitalization, Congenital Anomaly, Other)
  Sender: FDA-Public Use
  Company Number: US-PFIZER INC-2012026061

PATIENT
  Sex: Male
  Weight: 4 kg

DRUGS (11)
  1. GLYBURIDE [Concomitant]
     Dosage: 2.5 MG, 2X/DAY
     Route: 064
     Dates: start: 20100513
  2. VALTREX [Concomitant]
     Indication: HERPES SIMPLEX
     Dosage: 500 MG, 2X/DAY
     Route: 064
     Dates: start: 20100320, end: 20100322
  3. FLUOXETINE [Concomitant]
     Dosage: 10 MG, UNK
     Route: 064
  4. GLYBURIDE [Concomitant]
     Dosage: 2.5 MG, 1X/DAY
     Route: 064
     Dates: start: 20100416
  5. MULTI-VITAMINS [Concomitant]
     Dosage: ONCE DAILY
     Route: 064
  6. PROZAC [Concomitant]
     Dosage: UNK
     Route: 064
     Dates: start: 20100329
  7. ZOLOFT [Suspect]
     Indication: OBSESSIVE-COMPULSIVE DISORDER
     Dosage: 50 MG, 1X/DAY
     Route: 064
     Dates: start: 20040201
  8. SERTRALINE [Concomitant]
     Dosage: 100 MG, TAKE 2 TABLETS DAILY
     Route: 064
  9. ZOLOFT [Suspect]
     Indication: DEPRESSION
     Dosage: 25 MG, 1X/DAY
     Route: 064
     Dates: start: 20040209, end: 20040201
  10. MACROBID [Concomitant]
     Dosage: 100 MG, 2X/DAY FOR FIVE DAYS
     Route: 064
     Dates: start: 20100504
  11. MACROBID [Concomitant]
     Dosage: 100 MG, 2X/DAY FOR SEVEN DAYS
     Route: 064
     Dates: start: 20091123

REACTIONS (13)
  - DIVERTICULITIS MECKEL'S [None]
  - ATRIAL SEPTAL DEFECT [None]
  - DILATATION VENTRICULAR [None]
  - MATERNAL EXPOSURE TIMING UNSPECIFIED [None]
  - PULMONARY VALVE STENOSIS [None]
  - AORTIC DILATATION [None]
  - BUNDLE BRANCH BLOCK RIGHT [None]
  - DEVELOPMENTAL DELAY [None]
  - FALLOT'S TETRALOGY [None]
  - PULMONARY VASCULAR DISORDER [None]
  - TRICUSPID VALVE INCOMPETENCE [None]
  - VENTRICULAR SEPTAL DEFECT [None]
  - MUSCULAR WEAKNESS [None]
